FAERS Safety Report 20429562 (Version 2)
Quarter: 2022Q1

REPORT INFORMATION
  Report Type: Report from Study
  Country: FR (occurrence: FR)
  Receive Date: 20220204
  Receipt Date: 20220208
  Transmission Date: 20220424
  Serious: Yes (Life-Threatening)
  Sender: FDA-Public Use
  Company Number: FR-SERVIER-S19011543

PATIENT

DRUGS (14)
  1. PEGASPARGASE [Suspect]
     Active Substance: PEGASPARGASE
     Indication: Acute lymphocytic leukaemia
     Dosage: 2050 IU, D12
     Route: 042
     Dates: start: 20190914, end: 20190914
  2. DAUNORUBICIN [Suspect]
     Active Substance: DAUNORUBICIN
     Indication: Acute lymphocytic leukaemia
     Dosage: 33 MG, ON D8
     Route: 042
     Dates: start: 20190910
  3. VINCRISTINE [Suspect]
     Active Substance: VINCRISTINE
     Indication: Acute lymphocytic leukaemia
     Dosage: 1.2 MG, ON D8
     Route: 042
     Dates: start: 20190910
  4. CYCLOPHOSPHAMIDE [Suspect]
     Active Substance: CYCLOPHOSPHAMIDE
     Indication: Acute lymphocytic leukaemia
     Dosage: 820 MG, ON D9
     Route: 042
     Dates: start: 20190911
  5. METHYLPREDNISOLONE [Suspect]
     Active Substance: METHYLPREDNISOLONE
     Indication: Acute lymphocytic leukaemia
     Dosage: 50 MG, ON D4
     Route: 048
     Dates: start: 20190906
  6. CILASTATIN SODIUM\IMIPENEM [Suspect]
     Active Substance: CILASTATIN SODIUM\IMIPENEM
     Indication: Infection
     Dosage: UNK
     Route: 042
     Dates: start: 20200916
  7. AMIKACIN SULFATE [Suspect]
     Active Substance: AMIKACIN SULFATE
     Indication: Infection
     Dosage: UNK, FOR 5 DAYS
     Route: 065
  8. CANCIDAS [Suspect]
     Active Substance: CASPOFUNGIN ACETATE
     Indication: Infection
     Dosage: UNK
     Route: 065
     Dates: start: 20200915, end: 20200918
  9. TARGOCID [Suspect]
     Active Substance: TEICOPLANIN
     Indication: Infection
     Dosage: UNK
     Route: 065
     Dates: start: 20200911, end: 20200917
  10. AMBISOME [Suspect]
     Active Substance: AMPHOTERICIN B
     Indication: Infection
     Dosage: UNK
     Route: 065
     Dates: start: 20200918
  11. TN UNSPECIFIED [Concomitant]
     Indication: Acute lymphocytic leukaemia
     Dosage: 12 MG, ON D4, D14
     Route: 037
     Dates: start: 20190906, end: 20190916
  12. TN UNSPECIFIED [Concomitant]
     Indication: Acute lymphocytic leukaemia
     Dosage: 30 MG, ON D24
     Route: 037
     Dates: start: 20190916, end: 20190916
  13. TN UNSPECIFIED [Concomitant]
     Indication: Acute lymphocytic leukaemia
     Dosage: 15 MG, ON D24
     Route: 037
     Dates: start: 20190916
  14. TN UNSPECIFIED [Concomitant]
     Indication: Product used for unknown indication
     Dosage: UNK
     Route: 065

REACTIONS (1)
  - Hepatitis fulminant [Recovered/Resolved]

NARRATIVE: CASE EVENT DATE: 20190919
